FAERS Safety Report 18202090 (Version 5)
Quarter: 2022Q1

REPORT INFORMATION
  Report Type: Other
  Country: US (occurrence: None)
  Receive Date: 20200827
  Receipt Date: 20220318
  Transmission Date: 20220423
  Serious: Yes (Hospitalization)
  Sender: FDA-Public Use
  Company Number: US-ROCHE-2665522

PATIENT
  Age: 60 Year
  Sex: Female
  Weight: 104.42 kg

DRUGS (5)
  1. OCREVUS [Suspect]
     Active Substance: OCRELIZUMAB
     Indication: Secondary progressive multiple sclerosis
     Dosage: 300 MG REPEAT IN 2 WEEKS, 600 MG EVERY 6 MONTHS
     Route: 042
     Dates: start: 20190614
  2. LYRICA [Concomitant]
     Active Substance: PREGABALIN
     Indication: Muscle twitching
     Route: 048
  3. SYNTHROID [Concomitant]
     Active Substance: LEVOTHYROXINE SODIUM
     Indication: Thyroid disorder
     Route: 048
  4. CYMBALTA [Concomitant]
     Active Substance: DULOXETINE HYDROCHLORIDE
     Indication: Depression
  5. HYDROCODONE [Concomitant]
     Active Substance: HYDROCODONE
     Indication: Pain
     Route: 048

REACTIONS (6)
  - Renal cyst [Not Recovered/Not Resolved]
  - Cystitis [Recovered/Resolved]
  - Nephrectomy [Recovered/Resolved]
  - Purulence [Not Recovered/Not Resolved]
  - Off label use [Unknown]
  - Malaise [Unknown]

NARRATIVE: CASE EVENT DATE: 20200601
